FAERS Safety Report 8890568 (Version 1)
Quarter: 2012Q4

REPORT INFORMATION
  Report Type: 
  Country: US (occurrence: US)
  Receive Date: 20121107
  Receipt Date: 20121107
  Transmission Date: 20130627
  Serious: Yes (Other)
  Sender: FDA-Public Use
  Company Number: US-ROCHE-1150290

PATIENT

DRUGS (2)
  1. BEVACIZUMAB [Suspect]
     Indication: PRODUCT USED FOR UNKNOWN INDICATION
     Route: 050
  2. BEVACIZUMAB [Suspect]
     Indication: OFF LABEL USE

REACTIONS (8)
  - Endophthalmitis [Unknown]
  - Retinal detachment [Unknown]
  - Necrotising retinitis [Unknown]
  - Suspected transmission of an infectious agent via product [Unknown]
  - Iris neovascularisation [Unknown]
  - Angle closure glaucoma [Unknown]
  - Cyclitic membrane [Unknown]
  - Chorioretinal disorder [Unknown]
